FAERS Safety Report 9305727 (Version 2)
Quarter: 2013Q2

REPORT INFORMATION
  Report Type: Spontaneous
  Country: KR (occurrence: KR)
  Receive Date: 20130523
  Receipt Date: 20130606
  Transmission Date: 20140414
  Serious: Yes (Hospitalization)
  Sender: FDA-Public Use
  Company Number: KR-ELI_LILLY_AND_COMPANY-KR201305004629

PATIENT
  Age: 28 Year
  Sex: Female

DRUGS (5)
  1. HUMALOG LISPRO [Suspect]
     Indication: GESTATIONAL DIABETES
     Dosage: 24 U, QD
     Dates: start: 20130410
  2. HUMULIN NPH [Suspect]
     Indication: GESTATIONAL DIABETES
     Dosage: 16 U,  EACH MORNING
     Dates: start: 20130410
  3. HUMULIN NPH [Suspect]
     Dosage: 18 U, BID
     Dates: start: 20130410
  4. HUMULIN REGULAR [Suspect]
     Indication: GESTATIONAL DIABETES
     Dosage: 32 U,  EACH MORNING
     Dates: start: 20130410
  5. HUMULIN REGULAR [Suspect]
     Dosage: 30 U, BID
     Dates: start: 20130410

REACTIONS (6)
  - Blood glucose abnormal [Unknown]
  - Tremor [Unknown]
  - Cold sweat [Unknown]
  - Paraesthesia oral [Unknown]
  - Hypoglycaemia [Unknown]
  - Maternal exposure during pregnancy [Not Recovered/Not Resolved]
